FAERS Safety Report 24122979 (Version 1)
Quarter: 2024Q3

REPORT INFORMATION
  Report Type: Spontaneous
  Country: NL (occurrence: NL)
  Receive Date: 20240723
  Receipt Date: 20240723
  Transmission Date: 20241016
  Serious: Yes (Other)
  Sender: AUROBINDO
  Company Number: NL-LRB-00980695

PATIENT
  Age: 89 Year
  Sex: Male
  Weight: 75 kg

DRUGS (4)
  1. IMATINIB [Suspect]
     Active Substance: IMATINIB
     Indication: Chronic myeloid leukaemia
     Dosage: 400 MILLIGRAM, ONCE A DAY (1 PIECE ONCE PER DAY)
     Route: 065
     Dates: start: 20240130, end: 20240216
  2. CLOPIDOGREL [Concomitant]
     Active Substance: CLOPIDOGREL BISULFATE
     Indication: Product used for unknown indication
     Dosage: 75 MILLIGRAM (TABLET, 75 MG (MILLIGRAM)
     Route: 065
  3. METOPROLOL [Concomitant]
     Active Substance: METOPROLOL
     Indication: Product used for unknown indication
     Dosage: 50 MILLIGRAM (MODIFIED-RELEASE TABLET, 50 MG (MILLIGRAM)
     Route: 065
  4. PANTOPRAZOLE SODIUM [Concomitant]
     Active Substance: PANTOPRAZOLE SODIUM
     Indication: Product used for unknown indication
     Dosage: 20 MILLIGRAM (GASTRO-RESISTANT TABLET, 20 MG (MILLIGRAM)
     Route: 065

REACTIONS (1)
  - Renal impairment [Recovered/Resolved]
